FAERS Safety Report 18271577 (Version 2)
Quarter: 2020Q4

REPORT INFORMATION
  Report Type: Other
  Country: PL (occurrence: PL)
  Receive Date: 20200916
  Receipt Date: 20201021
  Transmission Date: 20210113
  Serious: No
  Sender: FDA-Public Use
  Company Number: PL-ROCHE-2677253

PATIENT
  Age: 48 Year
  Sex: Female

DRUGS (2)
  1. NSAIDS [Concomitant]
     Active Substance: UNSPECIFIED INGREDIENT
     Indication: RHEUMATOID ARTHRITIS
  2. ROACTEMRA [Suspect]
     Active Substance: TOCILIZUMAB
     Indication: RHEUMATOID ARTHRITIS
     Dosage: DRIP
     Route: 042
     Dates: start: 2008, end: 2017

REACTIONS (1)
  - Gastrointestinal pain [Recovered/Resolved]
